FAERS Safety Report 19585341 (Version 1)
Quarter: 2021Q3

REPORT INFORMATION
  Report Type: Spontaneous
  Country: US (occurrence: US)
  Receive Date: 20210721
  Receipt Date: 20210721
  Transmission Date: 20211014
  Serious: No
  Sender: FDA-Public Use
  Company Number: US-ORGANON-O2107USA001306

PATIENT
  Sex: Female

DRUGS (7)
  1. OMALIZUMAB. [Concomitant]
     Active Substance: OMALIZUMAB
  2. MONTELUKAST SODIUM. [Concomitant]
     Active Substance: MONTELUKAST SODIUM
  3. METFORMIN [Concomitant]
     Active Substance: METFORMIN HYDROCHLORIDE
  4. LOSARTAN AND HYDROCHLOROTHIAZIDE [Concomitant]
     Active Substance: HYDROCHLOROTHIAZIDE\LOSARTAN POTASSIUM
  5. EPIPEN [Concomitant]
     Active Substance: EPINEPHRINE
  6. METOPROLOL. [Concomitant]
     Active Substance: METOPROLOL
  7. SINGULAIR [Suspect]
     Active Substance: MONTELUKAST SODIUM
     Indication: URTICARIA
     Dosage: UNK
     Route: 048

REACTIONS (3)
  - Erythema [Unknown]
  - Product use in unapproved indication [Unknown]
  - Pruritus [Unknown]
